FAERS Safety Report 9519863 (Version 1)
Quarter: 2013Q3

REPORT INFORMATION
  Report Type: Spontaneous
  Country: IT (occurrence: IT)
  Receive Date: 20130912
  Receipt Date: 20130912
  Transmission Date: 20140515
  Serious: Yes (Hospitalization)
  Sender: FDA-Public Use
  Company Number: IT-TEVA-429894ISR

PATIENT
  Age: 80 Year
  Sex: Male

DRUGS (11)
  1. AZITROMICINA [Suspect]
     Indication: PNEUMONITIS
     Dosage: 500 MILLIGRAM DAILY;
     Route: 048
     Dates: start: 20130819, end: 20130820
  2. CEFEPIME [Suspect]
     Indication: PNEUMONITIS
     Dosage: 2 GRAM DAILY;
     Route: 030
     Dates: start: 20130819, end: 20130820
  3. ASCRIPTIN [Concomitant]
     Indication: ISCHAEMIC CARDIOMYOPATHY
  4. ASCRIPTIN [Concomitant]
     Indication: ISCHAEMIC CARDIOMYOPATHY
  5. ASCRIPTIN [Concomitant]
  6. DEURSIL 450MG [Concomitant]
     Dosage: PROLONGED-RELEASE HARD CAPSULES
  7. BRIFRIZIDE 30MG+12.G MG [Concomitant]
  8. LASIX 25MG [Concomitant]
     Indication: HYPERTENSION
  9. XANAX 0.25MG [Concomitant]
  10. ONCO-CARBIDE 500MG [Concomitant]
     Indication: MYELOPROLIFERATIVE DISORDER
  11. MANIDIPINA [Concomitant]
     Indication: HYPERTENSION

REACTIONS (3)
  - Rash [Recovering/Resolving]
  - Oedema peripheral [Recovering/Resolving]
  - Erythema [Recovering/Resolving]
